FAERS Safety Report 20190315 (Version 1)
Quarter: 2021Q4

REPORT INFORMATION
  Report Type: Spontaneous
  Country: DE (occurrence: DE)
  Receive Date: 20211215
  Receipt Date: 20211215
  Transmission Date: 20220303
  Serious: Yes (Hospitalization)
  Sender: FDA-Public Use
  Company Number: None

PATIENT
  Age: 71 Year
  Sex: Male

DRUGS (7)
  1. METFORMIN [Suspect]
     Active Substance: METFORMIN HYDROCHLORIDE
     Indication: Product used for unknown indication
     Dosage: 1000 MG, 0.5-0-0.5-0, TABLET
     Route: 048
  2. EMPAGLIFLOZIN [Suspect]
     Active Substance: EMPAGLIFLOZIN
     Indication: Product used for unknown indication
     Dosage: 10 MG, 1-0-0-0, TABLETTEN
     Route: 048
  3. SITAGLIPTIN [Suspect]
     Active Substance: SITAGLIPTIN
     Indication: Product used for unknown indication
     Dosage: 100 MG, 0-1-0-0, TABLETTEN
     Route: 048
  4. SIMVASTATIN [Concomitant]
     Active Substance: SIMVASTATIN
     Indication: Product used for unknown indication
     Dosage: 30 MG, 0-1-0-0, TABLET
     Route: 048
  5. RAMIPRIL [Concomitant]
     Active Substance: RAMIPRIL
     Indication: Product used for unknown indication
     Dosage: 5 MG, 1-0-0-0, TABLET
     Route: 048
  6. OMEPRAZOLE [Concomitant]
     Active Substance: OMEPRAZOLE
     Indication: Product used for unknown indication
     Dosage: 40 MG, 1-0-0-0, RETARD-CAPSULES
     Route: 048
  7. ALLOPURINOL [Concomitant]
     Active Substance: ALLOPURINOL
     Indication: Product used for unknown indication
     Dosage: 300 MG, 1-0-0-0, TABLET
     Route: 048

REACTIONS (7)
  - Hyperglycaemia [Unknown]
  - Polyuria [Unknown]
  - Thirst [Unknown]
  - Headache [Unknown]
  - Somnolence [Unknown]
  - Nausea [Unknown]
  - Product monitoring error [Unknown]
